FAERS Safety Report 8557408-2 (Version None)
Quarter: 2012Q3

REPORT INFORMATION
  Report Type: 
  Country: None (occurrence: None)
  Receive Date: 20120801
  Receipt Date: 20120724
  Transmission Date: 20120928
  Serious: Yes (Other)
  Sender: FDA-Public Use
  Company Number: US-ROCHE-1061197

PATIENT
  Sex: Male
  Weight: 63.56 kg

DRUGS (4)
  1. IMODIUM [Concomitant]
  2. BENTYL [Concomitant]
  3. TYLENOL (CAPLET) [Concomitant]
  4. ACCUTANE [Suspect]
     Indication: ACNE
     Dosage: FREQUENCY WAS 5 TO 6 TIMES
     Dates: start: 19840101, end: 19880101

REACTIONS (7)
  - SUICIDAL IDEATION [None]
  - CROHN'S DISEASE [None]
  - COLITIS ULCERATIVE [None]
  - INFLAMMATORY BOWEL DISEASE [None]
  - BIPOLAR DISORDER [None]
  - IRRITABLE BOWEL SYNDROME [None]
  - INTESTINAL HAEMORRHAGE [None]
